FAERS Safety Report 4554797-0 (Version None)
Quarter: 2005Q1

REPORT INFORMATION
  Report Type: 
  Country: None (occurrence: None)
  Receive Date: 20041227
  Receipt Date: 20040609
  Transmission Date: 20050727
  Serious: No
  Sender: FDA-Public Use
  Company Number: 2004-0007155

PATIENT
  Age: 47 Year
  Sex: Male
  Weight: 64.4108 kg

DRUGS (13)
  1. VIREAD [Suspect]
     Indication: HIV INFECTION
     Dosage: 300 MG, 1 IN 1 D, ORAL
     Route: 048
     Dates: start: 20031115
  2. KALETRA [Concomitant]
  3. SUSTIVA [Concomitant]
  4. TRICOR [Concomitant]
  5. ZANTAC [Concomitant]
  6. XANAX [Concomitant]
  7. TRAZODONE (TRAZODONE) [Concomitant]
  8. VALIUM [Concomitant]
  9. FLONASE [Concomitant]
  10. ANDROGEL [Concomitant]
  11. IBUPROFEN [Concomitant]
  12. VITAMIN E [Concomitant]
  13. ALLERGY INJECTIONS [Concomitant]

REACTIONS (3)
  - ABDOMINAL PAIN [None]
  - NAUSEA [None]
  - OSTEOPENIA [None]
